FAERS Safety Report 13773337 (Version 3)
Quarter: 2017Q3

REPORT INFORMATION
  Report Type: Spontaneous
  Country: SK (occurrence: SK)
  Receive Date: 20170720
  Receipt Date: 20170808
  Transmission Date: 20171127
  Serious: Yes (Other)
  Sender: FDA-Public Use
  Company Number: SK-BAYER-2017-133698

PATIENT
  Sex: Female

DRUGS (1)
  1. MIRENA [Suspect]
     Active Substance: LEVONORGESTREL
     Dosage: 20 MCG/24HR, CONT
     Route: 015
     Dates: start: 20170612

REACTIONS (5)
  - Circulatory collapse [None]
  - Gait disturbance [None]
  - Dizziness [None]
  - Asthenia [None]
  - Skin exfoliation [None]

NARRATIVE: CASE EVENT DATE: 20170612
